FAERS Safety Report 5371649-7 (Version None)
Quarter: 2007Q2

REPORT INFORMATION
  Report Type: 
  Country: None (occurrence: None)
  Receive Date: 20070627
  Receipt Date: 20070622
  Transmission Date: 20071010
  Serious: Yes (Other)
  Sender: FDA-Public Use
  Company Number: PHEH2007US09151

PATIENT
  Sex: Female

DRUGS (2)
  1. AREDIA [Suspect]
     Route: 042
  2. ZOMETA [Suspect]
     Route: 042

REACTIONS (1)
  - OSTEONECROSIS [None]
